FAERS Safety Report 14438614 (Version 1)
Quarter: 2018Q1

REPORT INFORMATION
  Report Type: Spontaneous
  Country: US (occurrence: US)
  Receive Date: 20180125
  Receipt Date: 20180125
  Transmission Date: 20180509
  Serious: No
  Sender: FDA-Public Use
  Company Number: US-ELI_LILLY_AND_COMPANY-US201801010560

PATIENT
  Age: 55 Year
  Sex: Female

DRUGS (4)
  1. VERZENIO [Suspect]
     Active Substance: ABEMACICLIB
     Indication: OESTROGEN RECEPTOR POSITIVE BREAST CANCER
     Dosage: 150 MG, UNK
     Route: 065
  2. FULVESTRANT. [Concomitant]
     Active Substance: FULVESTRANT
     Indication: OESTROGEN RECEPTOR POSITIVE BREAST CANCER
     Route: 065
  3. VERZENIO [Suspect]
     Active Substance: ABEMACICLIB
     Indication: HER-2 POSITIVE BREAST CANCER
  4. FULVESTRANT. [Concomitant]
     Active Substance: FULVESTRANT
     Indication: HER-2 POSITIVE BREAST CANCER

REACTIONS (1)
  - Diarrhoea [Unknown]
